FAERS Safety Report 8287536-0 (Version None)
Quarter: 2012Q2

REPORT INFORMATION
  Report Type: 
  Country: None (occurrence: None)
  Receive Date: 20120416
  Receipt Date: 20120407
  Transmission Date: 20120825
  Serious: Yes (Hospitalization)
  Sender: FDA-Public Use
  Company Number: US-BAYER-2011-113839

PATIENT
  Age: 27 Year
  Sex: Female
  Weight: 140.86 kg

DRUGS (9)
  1. YASMIN [Suspect]
     Indication: CONTRACEPTION
     Dosage: UNK
     Dates: start: 20040901, end: 20060401
  2. CLARITIN-D [Concomitant]
     Dosage: UNK
     Dates: start: 20060318
  3. COUGH AND COLD PREPARATIONS [Concomitant]
  4. YASMIN [Suspect]
     Indication: ACNE
  5. YAZ [Suspect]
     Indication: CONTRACEPTION
     Dosage: UNK
     Dates: start: 20040101, end: 20050101
  6. YAZ [Suspect]
     Indication: PREMENSTRUAL SYNDROME
  7. YAZ [Suspect]
     Indication: ACNE
     Dosage: UNK
     Dates: start: 20040101, end: 20060401
  8. LEVAQUIN [Concomitant]
     Dosage: 500 MG, UNK
     Route: 048
     Dates: start: 20060318
  9. YASMIN [Suspect]
     Indication: PREMENSTRUAL SYNDROME

REACTIONS (3)
  - EMOTIONAL DISTRESS [None]
  - INJURY [None]
  - PULMONARY EMBOLISM [None]
